FAERS Safety Report 23959107 (Version 1)
Quarter: 2024Q2

REPORT INFORMATION
  Report Type: Spontaneous
  Country: FR (occurrence: FR)
  Receive Date: 20240611
  Receipt Date: 20240611
  Transmission Date: 20240716
  Serious: Yes (Hospitalization, Other)
  Sender: FDA-Public Use
  Company Number: None

PATIENT
  Age: 0 Year
  Sex: Female
  Weight: 2.73 kg

DRUGS (6)
  1. CIMZIA [Suspect]
     Active Substance: CERTOLIZUMAB PEGOL
     Indication: Ankylosing spondylitis
     Dosage: 1 DOSAGE FORM, EV 15 DAYS
     Route: 064
     Dates: start: 20230910, end: 20240105
  2. PREDNISONE [Suspect]
     Active Substance: PREDNISONE
     Indication: Ankylosing spondylitis
     Dosage: 20 MILLIGRAM PER DAY
     Route: 064
     Dates: start: 20230910, end: 20231015
  3. LEVOTHYROXINE [Suspect]
     Active Substance: LEVOTHYROXINE\LEVOTHYROXINE SODIUM
     Indication: Thyroiditis
     Dosage: 112 MILLIGRAM PER DAY
     Route: 064
  4. INNOHEP [Suspect]
     Active Substance: TINZAPARIN SODIUM
     Indication: Deep vein thrombosis
     Dosage: 0.5 MILLILITER PER DAY
     Route: 064
     Dates: start: 20231104, end: 20240129
  5. INSULIN HUMAN [Suspect]
     Active Substance: INSULIN HUMAN
     Indication: Gestational diabetes
     Dosage: UNK
     Route: 064
     Dates: start: 20230803
  6. RINVOQ [Suspect]
     Active Substance: UPADACITINIB
     Indication: Ankylosing spondylitis
     Dosage: 1 DOSAGE FORM PER DAY
     Route: 064
     Dates: start: 20230608, end: 20230702

REACTIONS (2)
  - Premature baby [Recovered/Resolved with Sequelae]
  - Maternal exposure during pregnancy [Unknown]

NARRATIVE: CASE EVENT DATE: 20230910
